FAERS Safety Report 7078145-X (Version None)
Quarter: 2010Q4

REPORT INFORMATION
  Report Type: 
  Country: None (occurrence: None)
  Receive Date: 20101101
  Receipt Date: 20101101
  Transmission Date: 20110411
  Serious: No
  Sender: FDA-Public Use
  Company Number: None

PATIENT
  Age: 53 Year
  Sex: Female
  Weight: 55.3388 kg

DRUGS (19)
  1. GAMMAGARD LIQUID [Suspect]
     Indication: MULTIPLE SCLEROSIS
     Dosage: 30 GRAMS IV EVERY 4 WEEKS (+/- 3 DAYS) WITH ACCREDO
     Route: 042
     Dates: start: 20030101
  2. ACETAMINOPHEN [Concomitant]
  3. DIPHENHYDRAMINE HCL [Concomitant]
  4. HEPARIN [Concomitant]
  5. SODIUM CHLORIDE [Concomitant]
  6. LIDOCAINE/PRILOCAINE [Concomitant]
  7. FOLIC ACID [Concomitant]
  8. CYMBALTA [Concomitant]
  9. LOMOTIL [Concomitant]
  10. LIPITOR [Concomitant]
  11. ALLEGRA [Concomitant]
  12. MECLIZINE [Concomitant]
  13. ANTIVERT [Concomitant]
  14. NEURONTIN [Concomitant]
  15. KLOR-CON [Concomitant]
  16. POTASSIUM CL [Concomitant]
  17. PHENERGAN [Concomitant]
  18. ZOFRAN [Concomitant]
  19. BACLOFEN [Concomitant]

REACTIONS (2)
  - HYPOAESTHESIA ORAL [None]
  - INFUSION RELATED REACTION [None]
